FAERS Safety Report 8459101-3 (Version None)
Quarter: 2012Q2

REPORT INFORMATION
  Report Type: 
  Country: None (occurrence: None)
  Receive Date: 20120622
  Receipt Date: 20120622
  Transmission Date: 20120825
  Serious: Yes (Life-Threatening, Hospitalization)
  Sender: FDA-Public Use
  Company Number: GB-PFIZER INC-2010US-30858

PATIENT
  Age: 59 Year
  Sex: Male
  Weight: 80 kg

DRUGS (3)
  1. ETHANOL [Concomitant]
  2. VERAPAMIL HCL [Suspect]
     Dosage: 60 TABLETS OF 40 MG
     Route: 065
  3. TENORETIC [Suspect]
     Indication: HYPERTENSION
     Dosage: 25/100 MG
     Route: 065

REACTIONS (3)
  - DRUG HALF-LIFE INCREASED [None]
  - OVERDOSE [None]
  - CARDIAC ARREST [None]
